FAERS Safety Report 13058697 (Version 3)
Quarter: 2017Q1

REPORT INFORMATION
  Report Type: Other
  Country: FR (occurrence: FR)
  Receive Date: 20161223
  Receipt Date: 20170308
  Transmission Date: 20170428
  Serious: Yes (Hospitalization, Other)
  Sender: FDA-Public Use
  Company Number: FR-ASTELLAS-2016US049941

PATIENT
  Age: 58 Year
  Sex: Male

DRUGS (6)
  1. ADVAGRAF [Suspect]
     Active Substance: TACROLIMUS
     Indication: RENAL TRANSPLANT
     Route: 048
  2. PANTOPRAZOLE SODIUM. [Suspect]
     Active Substance: PANTOPRAZOLE SODIUM
     Indication: PRODUCT USED FOR UNKNOWN INDICATION
     Route: 048
  3. PAROXETINE ARROW [Suspect]
     Active Substance: PAROXETINE
     Indication: PRODUCT USED FOR UNKNOWN INDICATION
     Route: 048
     Dates: end: 20161206
  4. ALLOPURINOL. [Concomitant]
     Active Substance: ALLOPURINOL
     Indication: PRODUCT USED FOR UNKNOWN INDICATION
     Dosage: UNK UNK, UNKNOWN FREQ.
     Route: 065
     Dates: end: 20161110
  5. BISOPROLOL MYLAN [Suspect]
     Active Substance: BISOPROLOL
     Indication: PRODUCT USED FOR UNKNOWN INDICATION
     Dosage: 1.25 MG, ONCE DAILY (IN MORNING)
     Route: 048
  6. ADVAGRAF [Suspect]
     Active Substance: TACROLIMUS
     Dosage: 4 MG, ONCE DAILY (IN MORNING)
     Route: 065

REACTIONS (17)
  - Cytopenia [Unknown]
  - Haemoptysis [Unknown]
  - Gastrointestinal haemorrhage [Recovered/Resolved]
  - Alloimmunisation [Unknown]
  - Anaemia [Unknown]
  - Immune thrombocytopenic purpura [Recovered/Resolved with Sequelae]
  - Asthenia [Unknown]
  - Thrombocytopenia [Unknown]
  - Angina pectoris [Unknown]
  - General physical health deterioration [Unknown]
  - Dyspnoea [Unknown]
  - Chills [Unknown]
  - Mouth ulceration [Unknown]
  - Nervous system disorder [Unknown]
  - Atrial fibrillation [Unknown]
  - Gastroenteritis [Unknown]
  - Chromaturia [Unknown]

NARRATIVE: CASE EVENT DATE: 201608
